FAERS Safety Report 6196405-1 (Version None)
Quarter: 2009Q2

REPORT INFORMATION
  Report Type: 
  Country: None (occurrence: None)
  Receive Date: 20090518
  Receipt Date: 20090518
  Transmission Date: 20091009
  Serious: Yes (Hospitalization)
  Sender: FDA-Public Use
  Company Number: None

PATIENT
  Sex: Male
  Weight: 83.4 kg

DRUGS (4)
  1. FLUOROURACIL [Suspect]
     Dosage: 5600 MG
  2. ERBITUX [Suspect]
     Dosage: 1000 MG
  3. LEUCOVORIN CALCIUM [Suspect]
     Dosage: 800 MG
  4. ELOXATIN [Suspect]
     Dosage: 127 MG

REACTIONS (1)
  - PULMONARY EMBOLISM [None]
